FAERS Safety Report 6810456-2 (Version None)
Quarter: 2010Q2

REPORT INFORMATION
  Report Type: 
  Country: None (occurrence: None)
  Receive Date: 20100630
  Receipt Date: 20100616
  Transmission Date: 20101027
  Serious: Yes (Hospitalization, Other)
  Sender: FDA-Public Use
  Company Number: CA-MYLANLABS-2010S1010664

PATIENT
  Age: 64 Year
  Sex: Female

DRUGS (13)
  1. VENLAFAXINE [Suspect]
     Dosage: 112.5MG OD
     Route: 065
  2. DOMPERIDONE [Suspect]
     Dosage: 10MG TID
     Route: 065
  3. AMIODARONE [Suspect]
     Dosage: 150MG BOLUS
     Route: 065
  4. AMIODARONE [Suspect]
     Route: 041
  5. FUROSEMIDE [Suspect]
     Dosage: 40MG OD
     Route: 065
  6. METOLAZONE [Suspect]
     Dosage: 2.5MG OD
     Route: 065
  7. IRBESARTAN [Concomitant]
     Dosage: 150MG BID
     Route: 065
  8. DIGOXIN [Concomitant]
     Dosage: 0.25MG OD
     Route: 065
  9. METFORMIN HCL [Concomitant]
     Dosage: 1000MG BID
     Route: 065
  10. GLIBENCLAMIDE [Concomitant]
     Dosage: 5MG BID
     Route: 065
  11. LEVOTHYROXINE SODIUM [Concomitant]
     Dosage: 200 MICROG OD
     Route: 065
  12. OMEPRAZOLE [Concomitant]
     Dosage: 20MG OD
     Route: 065
  13. LIPITOR [Concomitant]
     Dosage: 10MG OD
     Route: 065

REACTIONS (3)
  - ELECTROCARDIOGRAM QT PROLONGED [None]
  - HYPOKALAEMIA [None]
  - TORSADE DE POINTES [None]
